FAERS Safety Report 20040752 (Version 1)
Quarter: 2021Q4

REPORT INFORMATION
  Report Type: Spontaneous
  Country: US (occurrence: None)
  Receive Date: 20211108
  Receipt Date: 20211108
  Transmission Date: 20220303
  Serious: Yes (Hospitalization)
  Sender: FDA-Public Use
  Company Number: None

PATIENT
  Sex: Female

DRUGS (8)
  1. IMATINIB [Suspect]
     Active Substance: IMATINIB
     Indication: Ovarian neoplasm
     Dosage: FREQUENCY : DAILY;?
     Route: 048
     Dates: start: 20191011
  2. ESCITALOPRAM [Concomitant]
     Active Substance: ESCITALOPRAM OXALATE
  3. LEXAPRO [Concomitant]
  4. LOMOTIL [Concomitant]
  5. OLANZAPINE [Concomitant]
     Active Substance: OLANZAPINE
  6. PROCHLOPER [Concomitant]
  7. TEMAZEPAM [Concomitant]
  8. ZOFRAN [Concomitant]

REACTIONS (2)
  - Hospitalisation [None]
  - Therapy interrupted [None]
